FAERS Safety Report 11689024 (Version 1)
Quarter: 2015Q4

REPORT INFORMATION
  Report Type: Spontaneous
  Country: None (occurrence: None)
  Receive Date: 20151030
  Receipt Date: 20151030
  Transmission Date: 20160304
  Serious: Yes (Other)
  Sender: FDA-Public Use
  Company Number: None

PATIENT
  Sex: Female

DRUGS (1)
  1. OMEPRAZOLE CAPSULES 20MG SANDOZ [Suspect]
     Active Substance: OMEPRAZOLE
     Route: 048

REACTIONS (2)
  - Product substitution issue [None]
  - Drug ineffective [None]
